FAERS Safety Report 5350722-3 (Version None)
Quarter: 2007Q2

REPORT INFORMATION
  Report Type: 
  Country: None (occurrence: None)
  Receive Date: 20070608
  Receipt Date: 20070531
  Transmission Date: 20071010
  Serious: No
  Sender: FDA-Public Use
  Company Number: US-ASTRAZENECA-2006UW08479

PATIENT
  Age: 560 Month
  Sex: Female
  Weight: 114.1 kg

DRUGS (4)
  1. SEROQUEL [Suspect]
     Indication: PSYCHOTIC DISORDER
     Route: 048
  2. BUSPIRONE [Concomitant]
  3. TRILEPTAL [Concomitant]
  4. CITULOPRCES [Concomitant]

REACTIONS (2)
  - DIABETES MELLITUS [None]
  - INJURY [None]
